FAERS Safety Report 5124642-3 (Version None)
Quarter: 2006Q4

REPORT INFORMATION
  Report Type: 
  Country: None (occurrence: None)
  Receive Date: 20061011
  Receipt Date: 20060530
  Transmission Date: 20070319
  Serious: Yes (Death, Hospitalization)
  Sender: FDA-Public Use
  Company Number: JP-NOVOPROD-253853

PATIENT
  Age: 57 Year
  Sex: Male
  Weight: 52 kg

DRUGS (15)
  1. NOVOSEVEN [Suspect]
     Indication: FACTOR VIII DEFICIENCY
     Dosage: 4.8 MG, BID
     Dates: start: 20060522, end: 20060522
  2. NOVOSEVEN [Suspect]
     Dosage: 4.8 MG, BID
     Route: 042
     Dates: start: 20060514, end: 20060514
  3. NOVOSEVEN [Suspect]
     Dosage: 4.8 MG, BID
     Route: 042
     Dates: start: 20060516, end: 20060516
  4. FEIBA                              /00286701/ [Concomitant]
     Indication: HAEMORRHAGE
     Dosage: 8000 U, QD
     Route: 042
     Dates: start: 20060514, end: 20060522
  5. POSTERISAN                         /00476001/ [Concomitant]
     Dosage: 2 G, QD
     Route: 061
     Dates: start: 20060509, end: 20060525
  6. LECICARBON                         /00739901/ [Concomitant]
     Dosage: UNK, QD
     Route: 054
     Dates: start: 20060511, end: 20060525
  7. PROMAC                             /01312301/ [Concomitant]
     Dosage: 15 G, QD
     Route: 048
     Dates: start: 20060515, end: 20060525
  8. TRANSAMIN [Concomitant]
     Dosage: UNK, QD
     Route: 048
     Dates: start: 20060515, end: 20060525
  9. LAC B [Concomitant]
     Dosage: 3 G, QD
     Route: 048
     Dates: start: 20060515, end: 20060525
  10. DIART [Concomitant]
     Dosage: 60 MG, QD
     Route: 048
     Dates: start: 20060521, end: 20060525
  11. HARNAL [Concomitant]
     Dosage: .2 MG, QD
     Route: 048
     Dates: start: 20060517, end: 20060525
  12. BESACOLIN [Concomitant]
     Dosage: 45 MG, QD
     Route: 048
     Dates: start: 20060517, end: 20060525
  13. DUROTEP [Concomitant]
     Dosage: 2.5 MG, QD
     Dates: start: 20060509, end: 20060526
  14. MORPHIN                            /00036303/ [Concomitant]
     Dosage: 24 MG, QD
     Route: 058
     Dates: start: 20060515, end: 20060526
  15. XYLOCAINE                          /00033401/ [Concomitant]
     Dosage: 240 MG, QD
     Dates: start: 20060515, end: 20060526

REACTIONS (3)
  - ASCITES [None]
  - HEPATIC NEOPLASM MALIGNANT [None]
  - PORTAL VEIN THROMBOSIS [None]
